FAERS Safety Report 13229392 (Version 1)
Quarter: 2017Q1

REPORT INFORMATION
  Report Type: Spontaneous
  Country: US (occurrence: US)
  Receive Date: 20170213
  Receipt Date: 20170213
  Transmission Date: 20170428
  Serious: Yes (Other)
  Sender: FDA-Public Use
  Company Number: None

PATIENT
  Age: 59 Year
  Sex: Male
  Weight: 81 kg

DRUGS (2)
  1. METOPROLOL  ER [Suspect]
     Active Substance: METOPROLOL SUCCINATE
     Indication: BLOOD PRESSURE MEASUREMENT
     Dosage: ?          QUANTITY:1 TABLET(S);?
     Route: 048
     Dates: start: 20150928, end: 20170209
  2. LISINOPRIL 10MG [Suspect]
     Active Substance: LISINOPRIL
     Indication: BLOOD PRESSURE MEASUREMENT
     Dosage: ?          QUANTITY:1 TABLET(S);?
     Route: 048
     Dates: start: 20150928, end: 20170209

REACTIONS (15)
  - Vomiting [None]
  - Back pain [None]
  - Pruritus [None]
  - Nausea [None]
  - Retching [None]
  - Productive cough [None]
  - Abdominal pain upper [None]
  - Flatulence [None]
  - Eructation [None]
  - Dyspnoea [None]
  - Fatigue [None]
  - Pollakiuria [None]
  - Rash [None]
  - Dyspepsia [None]
  - Abdominal distension [None]

NARRATIVE: CASE EVENT DATE: 20170120
